FAERS Safety Report 13268650 (Version 1)
Quarter: 2017Q1

REPORT INFORMATION
  Report Type: Spontaneous
  Country: US (occurrence: US)
  Receive Date: 20170224
  Receipt Date: 20170224
  Transmission Date: 20170428
  Serious: Yes (Death)
  Sender: FDA-Public Use
  Company Number: None

PATIENT
  Age: 36 Year
  Sex: Female

DRUGS (7)
  1. HYDROXYUREA. [Concomitant]
     Active Substance: HYDROXYUREA
  2. EXJADE [Concomitant]
     Active Substance: DEFERASIROX
  3. LETARIS [Concomitant]
     Active Substance: AMBRISENTAN
  4. FOLIC ACID. [Concomitant]
     Active Substance: FOLIC ACID
  5. MAGNESIUM [Concomitant]
     Active Substance: MAGNESIUM
  6. XARELTO [Concomitant]
     Active Substance: RIVAROXABAN
  7. SILDENAFIL. [Suspect]
     Active Substance: SILDENAFIL
     Indication: PULMONARY HYPERTENSION
     Route: 048

REACTIONS (1)
  - Death [None]
